FAERS Safety Report 26180245 (Version 1)
Quarter: 2025Q4

REPORT INFORMATION
  Report Type: Spontaneous
  Country: US (occurrence: US)
  Receive Date: 20251219
  Receipt Date: 20251219
  Transmission Date: 20260118
  Serious: Yes (Other)
  Sender: DR REDDYS
  Company Number: None

PATIENT
  Age: 64 Year
  Sex: Male

DRUGS (1)
  1. CLOZAPINE [Suspect]
     Active Substance: CLOZAPINE
     Indication: Schizoaffective disorder
     Dosage: HE EXPERIENCED RECURRENT EPISODES OF ORTHOSTATIC HYPOTENSION FOR NEXT 6 MONTHS UNTIL CLOZAPINE WAS T

REACTIONS (1)
  - Orthostatic hypotension [Recovered/Resolved]
